FAERS Safety Report 4482450-0 (Version None)
Quarter: 2004Q4

REPORT INFORMATION
  Report Type: 
  Country: None (occurrence: None)
  Receive Date: 20041022
  Receipt Date: 20041014
  Transmission Date: 20050328
  Serious: Yes (Hospitalization, Disabling, Other)
  Sender: FDA-Public Use
  Company Number: ZA-MERCK-0410ZAF00020

PATIENT
  Age: 55 Year
  Sex: Female

DRUGS (2)
  1. VIOXX [Suspect]
     Indication: MUSCULOSKELETAL STIFFNESS
     Route: 048
     Dates: start: 20040801
  2. CLOMIPRAMINE HYDROCHLORIDE [Concomitant]
     Indication: DEPRESSION
     Route: 048

REACTIONS (3)
  - BLINDNESS UNILATERAL [None]
  - HYPERTENSION [None]
  - OPTIC DISC VASCULAR DISORDER [None]
